FAERS Safety Report 4340685-1 (Version None)
Quarter: 2004Q2

REPORT INFORMATION
  Report Type: 
  Country: None (occurrence: None)
  Receive Date: 20040413
  Receipt Date: 20040407
  Transmission Date: 20050107
  Serious: Yes (Death, Hospitalization, Congenital Anomaly)
  Sender: FDA-Public Use
  Company Number: 2004UW06901

PATIENT
  Sex: Male

DRUGS (2)
  1. ATACAND [Suspect]
  2. BECLOMETHASONE DIPROPIONATE [Suspect]

REACTIONS (20)
  - BLADDER AGENESIS [None]
  - CRANIAL SUTURES WIDENING [None]
  - ELECTROCARDIOGRAM ABNORMAL [None]
  - FOETAL GROWTH RETARDATION [None]
  - FOETAL MALFORMATION [None]
  - HYPOSPADIAS [None]
  - JOINT CONTRACTURE [None]
  - KIDNEY ENLARGEMENT [None]
  - KIDNEY MALFORMATION [None]
  - LIMB DEFORMITY [None]
  - MATERNAL DRUGS AFFECTING FOETUS [None]
  - MULTIPLE CONGENITAL ABNORMALITIES [None]
  - NEONATAL ANURIA [None]
  - NEONATAL HYPOTENSION [None]
  - OLIGOHYDRAMNIOS [None]
  - PREMATURE BABY [None]
  - PULMONARY CONGESTION [None]
  - RENAL AGENESIS [None]
  - SINGLE FUNCTIONAL KIDNEY [None]
  - SKULL MALFORMATION [None]
